FAERS Safety Report 6534661-8 (Version None)
Quarter: 2009Q4

REPORT INFORMATION
  Report Type: 
  Country: None (occurrence: None)
  Receive Date: 20091228
  Receipt Date: 20090918
  Transmission Date: 20100525
  Serious: Yes (Hospitalization)
  Sender: FDA-Public Use
  Company Number: US-003442

PATIENT
  Age: 44 Year
  Sex: Female
  Weight: 91 kg

DRUGS (5)
  1. MULTIHANCE [Suspect]
     Indication: NUCLEAR MAGNETIC RESONANCE IMAGING
     Dosage: 20ML ONCE INTRAVENOUS
     Route: 042
     Dates: start: 20090914, end: 20090914
  2. ABILIFY [Concomitant]
  3. LEVOXYL [Concomitant]
  4. ESTRACE [Concomitant]
  5. CYMBALTA [Concomitant]

REACTIONS (1)
  - PRESYNCOPE [None]
